FAERS Safety Report 12608120 (Version 2)
Quarter: 2016Q3

REPORT INFORMATION
  Report Type: Spontaneous
  Country: BR (occurrence: BR)
  Receive Date: 20160729
  Receipt Date: 20160812
  Transmission Date: 20161109
  Serious: Yes (Other)
  Sender: FDA-Public Use
  Company Number: BR-SA-2016SA134047

PATIENT
  Age: 2 Year
  Sex: Female
  Weight: 16 kg

DRUGS (2)
  1. ALLEGRA PEDIATRICO [Suspect]
     Active Substance: FEXOFENADINE HYDROCHLORIDE
     Indication: RHINITIS
     Dosage: FORM: SUSPENSION
     Route: 048
     Dates: start: 20160716
  2. METAMIZOLE SALT NOT SPECIFIED [Suspect]
     Active Substance: METAMIZOLE
     Indication: PROPHYLAXIS
     Route: 048
     Dates: start: 20160717, end: 20160719

REACTIONS (2)
  - Hypothermia [Recovering/Resolving]
  - Body temperature decreased [Recovering/Resolving]

NARRATIVE: CASE EVENT DATE: 20160719
